FAERS Safety Report 18576556 (Version 2)
Quarter: 2022Q2

REPORT INFORMATION
  Report Type: Spontaneous
  Country: HN (occurrence: HN)
  Receive Date: 20201203
  Receipt Date: 20220518
  Transmission Date: 20220721
  Serious: Yes (Other)
  Sender: FDA-Public Use
  Company Number: HN-NOVARTISPH-NVSC2020HN318564

PATIENT
  Sex: Female

DRUGS (2)
  1. GLIVEC [Suspect]
     Active Substance: IMATINIB MESYLATE
     Indication: Gastrointestinal stromal tumour
     Dosage: 400 MG (1*400MG)
     Route: 065
  2. GLIVEC [Suspect]
     Active Substance: IMATINIB MESYLATE
     Dosage: 400 MG, QOD (400 MG (1*400MG))
     Route: 065

REACTIONS (7)
  - Thyroid mass [Unknown]
  - Weight decreased [Unknown]
  - Skin discolouration [Unknown]
  - Oesophagitis [Unknown]
  - Gastritis [Unknown]
  - Duodenitis [Unknown]
  - Inappropriate schedule of product administration [Unknown]
